FAERS Safety Report 9651157 (Version 1)
Quarter: 2013Q4

REPORT INFORMATION
  Report Type: Spontaneous
  Country: US (occurrence: US)
  Receive Date: 20131029
  Receipt Date: 20131029
  Transmission Date: 20140711
  Serious: Yes (Hospitalization)
  Sender: FDA-Public Use
  Company Number: US-BAYER-2013-127958

PATIENT
  Sex: 0

DRUGS (1)
  1. STIVARGA [Suspect]
     Dosage: DAILY DOSE 160 MG

REACTIONS (1)
  - Palmar-plantar erythrodysaesthesia syndrome [None]
